FAERS Safety Report 18545790 (Version 5)
Quarter: 2021Q4

REPORT INFORMATION
  Report Type: Report from Study
  Country: US (occurrence: US)
  Receive Date: 20201125
  Receipt Date: 20211203
  Transmission Date: 20220303
  Serious: Yes (Disabling)
  Sender: FDA-Public Use
  Company Number: US-SA-2020SA298666

PATIENT
  Age: 56 Year
  Sex: Female

DRUGS (6)
  1. ALEMTUZUMAB [Suspect]
     Active Substance: ALEMTUZUMAB
     Indication: Multiple sclerosis
     Dosage: 12 MG, QD
     Route: 041
     Dates: start: 20201012, end: 20201012
  2. ALEMTUZUMAB [Suspect]
     Active Substance: ALEMTUZUMAB
     Dosage: 12 MG, QD
     Route: 041
     Dates: start: 20201014, end: 20201014
  3. ALEMTUZUMAB [Suspect]
     Active Substance: ALEMTUZUMAB
     Dosage: 12 MG, QD
     Route: 041
     Dates: start: 20201016, end: 20201016
  4. ALEMTUZUMAB [Suspect]
     Active Substance: ALEMTUZUMAB
     Dosage: 12 MG, QD
     Route: 041
     Dates: start: 20201019, end: 20201020
  5. ZYRTEC [Concomitant]
     Active Substance: CETIRIZINE HYDROCHLORIDE
     Dosage: UNK, QD
  6. BENADRYL [Concomitant]
     Active Substance: DIPHENHYDRAMINE HYDROCHLORIDE
     Indication: Premedication
     Dosage: UNK
     Dates: start: 20201012

REACTIONS (21)
  - Asthenia [Unknown]
  - Dysstasia [Recovered/Resolved]
  - Balance disorder [Not Recovered/Not Resolved]
  - Tremor [Recovered/Resolved]
  - Headache [Recovering/Resolving]
  - Chills [Recovered/Resolved]
  - Fall [Unknown]
  - Facial spasm [Unknown]
  - Eyelid function disorder [Unknown]
  - Urinary incontinence [Unknown]
  - Pollakiuria [Unknown]
  - Rhinitis allergic [Unknown]
  - Muscle spasms [Unknown]
  - Fatigue [Unknown]
  - Carpal tunnel decompression [Unknown]
  - Varicella zoster virus infection [Unknown]
  - Memory impairment [Unknown]
  - Dyskinesia [Unknown]
  - Ankle fracture [Unknown]
  - Stress fracture [Unknown]
  - Feeling abnormal [Unknown]

NARRATIVE: CASE EVENT DATE: 20200101
